FAERS Safety Report 12878380 (Version 5)
Quarter: 2017Q4

REPORT INFORMATION
  Report Type: Report from Study
  Country: FR (occurrence: FR)
  Receive Date: 20161024
  Receipt Date: 20171106
  Transmission Date: 20180320
  Serious: Yes (Hospitalization, Other)
  Sender: FDA-Public Use
  Company Number: FR-BAYER-2016-199089

PATIENT
  Age: 57 Year
  Sex: Female
  Weight: 45 kg

DRUGS (8)
  1. FOLFOX [Concomitant]
     Active Substance: FLUOROURACIL\LEUCOVORIN CALCIUM\OXALIPLATIN
     Dosage: UNK
     Dates: start: 20170307, end: 20170607
  2. STIVARGA [Suspect]
     Active Substance: REGORAFENIB
     Indication: RECTOSIGMOID CANCER STAGE III
     Dosage: 160 MG (4 TABLETS AT 40 MG)
     Dates: start: 20160624, end: 20160709
  3. STIVARGA [Suspect]
     Active Substance: REGORAFENIB
     Indication: RECTOSIGMOID CANCER STAGE III
     Dosage: 120MG DAILY (3 TABLETS OF 40MG)
     Dates: start: 20170214, end: 20170227
  4. XELODA [Concomitant]
     Active Substance: CAPECITABINE
     Dosage: UNK
     Dates: start: 20170620
  5. LAMALINE [ATROPA BELLAD EXT,CAFF,PAPAV SOMNIF TINCT,PARACET] [Concomitant]
     Dosage: TOTAL DAILY DOSE 30 MG
     Dates: start: 20160706, end: 20160802
  6. AVASTIN [Concomitant]
     Active Substance: BEVACIZUMAB
     Dosage: UNK
     Dates: start: 20170307
  7. STIVARGA [Suspect]
     Active Substance: REGORAFENIB
     Indication: RECTOSIGMOID CANCER STAGE III
     Dosage: 80MG DAILY (2 TABLETS OF 40MG)
     Route: 048
     Dates: start: 20160802, end: 20170213
  8. TRAMADOL. [Concomitant]
     Active Substance: TRAMADOL
     Dosage: 50 MG, UNK
     Dates: start: 20160709, end: 20160719

REACTIONS (2)
  - Purpura [Recovered/Resolved]
  - Thrombocytopenia [Recovering/Resolving]

NARRATIVE: CASE EVENT DATE: 20160709
